FAERS Safety Report 9362106 (Version 2)
Quarter: 2013Q2

REPORT INFORMATION
  Report Type: Spontaneous
  Country: US (occurrence: US)
  Receive Date: 20130621
  Receipt Date: 20130627
  Transmission Date: 20140414
  Serious: Yes (Death, Hospitalization, Other)
  Sender: FDA-Public Use
  Company Number: US-BAXTER-2013BAX022775

PATIENT
  Sex: 0

DRUGS (1)
  1. DIANEAL LOW CALCIUM [Suspect]
     Indication: PERITONEAL DIALYSIS
     Route: 033

REACTIONS (6)
  - Myocardial infarction [Fatal]
  - Infection [Unknown]
  - Cardiac disorder [Unknown]
  - Peritonitis [Unknown]
  - Pyrexia [Unknown]
  - Peritoneal dialysis complication [Unknown]
